FAERS Safety Report 19999586 (Version 3)
Quarter: 2021Q4

REPORT INFORMATION
  Report Type: Spontaneous
  Country: US (occurrence: US)
  Receive Date: 20211026
  Receipt Date: 20211129
  Transmission Date: 20220303
  Serious: Yes (Other)
  Sender: FDA-Public Use
  Company Number: US-SUNOVION-2021SUN003939

PATIENT
  Age: 70 Year
  Sex: Female

DRUGS (3)
  1. BROVANA [Suspect]
     Active Substance: ARFORMOTEROL TARTRATE
     Dosage: UNK
     Route: 055
  2. BROVANA [Suspect]
     Active Substance: ARFORMOTEROL TARTRATE
     Dosage: UNK
     Route: 055
  3. BROVANA [Suspect]
     Active Substance: ARFORMOTEROL TARTRATE
     Dosage: UNK
     Route: 055
     Dates: start: 202109

REACTIONS (10)
  - Ovarian cancer [Unknown]
  - Pulmonary congestion [Unknown]
  - Drug ineffective [Unknown]
  - Oxygen saturation decreased [Recovered/Resolved]
  - Abdominal pain upper [Unknown]
  - Illness [Unknown]
  - Chronic obstructive pulmonary disease [Unknown]
  - Headache [Recovered/Resolved]
  - Dyspnoea [Unknown]
  - Product supply issue [Unknown]

NARRATIVE: CASE EVENT DATE: 20201031
